FAERS Safety Report 4275129-1 (Version None)
Quarter: 2004Q1

REPORT INFORMATION
  Report Type: 
  Country: None (occurrence: None)
  Receive Date: 20040121
  Receipt Date: 20040109
  Transmission Date: 20041129
  Serious: Yes (Other)
  Sender: FDA-Public Use
  Company Number: US-BRISTOL-MYERS SQUIBB COMPANY-12475000

PATIENT
  Sex: Male

DRUGS (1)
  1. SERZONE [Suspect]

REACTIONS (3)
  - CARBON MONOXIDE POISONING [None]
  - COGNITIVE DISORDER [None]
  - ENCEPHALOPATHY [None]
